FAERS Safety Report 25627906 (Version 1)
Quarter: 2025Q3

REPORT INFORMATION
  Report Type: Spontaneous
  Country: MY (occurrence: MY)
  Receive Date: 20250731
  Receipt Date: 20250731
  Transmission Date: 20251020
  Serious: Yes (Other)
  Sender: MYLAN
  Company Number: MY-MYLANLABS-2025M1062422

PATIENT
  Age: 50 Year
  Sex: Male

DRUGS (1)
  1. EMTRICITABINE\TENOFOVIR DISOPROXIL FUMARATE [Suspect]
     Active Substance: EMTRICITABINE\TENOFOVIR DISOPROXIL FUMARATE
     Indication: Retroviral infection
     Dosage: 1 DOSAGE FORM, QD

REACTIONS (4)
  - Rash maculo-papular [Recovering/Resolving]
  - Swelling [Recovering/Resolving]
  - Eosinophilia [Recovering/Resolving]
  - Product substitution issue [Unknown]
